FAERS Safety Report 7312516-9 (Version None)
Quarter: 2011Q1

REPORT INFORMATION
  Report Type: 
  Country: None (occurrence: None)
  Receive Date: 20110214
  Receipt Date: 20110128
  Transmission Date: 20110831
  Serious: Yes (Hospitalization)
  Sender: FDA-Public Use
  Company Number: CTI_01297_2011

PATIENT
  Sex: Male

DRUGS (3)
  1. MEIACT (MEIAVT MS (CEFDITOREN PIVOXIL)) (NOT SPECIFIED) [Suspect]
     Indication: COUGH
     Dosage: 140 MG ORAL
     Route: 048
     Dates: start: 20101231, end: 20110101
  2. MEIACT (MEIAVT MS (CEFDITOREN PIVOXIL)) (NOT SPECIFIED) [Suspect]
     Indication: RHINORRHOEA
     Dosage: 140 MG ORAL
     Route: 048
     Dates: start: 20101231, end: 20110101
  3. ANTIBIOTICS-RESISTANT LACTIC ACID BACTERIAE [Concomitant]

REACTIONS (7)
  - FACE OEDEMA [None]
  - HEPATITIS [None]
  - TOXIC SKIN ERUPTION [None]
  - TONSILLITIS [None]
  - PLATELET COUNT INCREASED [None]
  - PRURITUS [None]
  - PYREXIA [None]
